FAERS Safety Report 4527017-0 (Version None)
Quarter: 2004Q4

REPORT INFORMATION
  Report Type: 
  Country: None (occurrence: None)
  Receive Date: 20041214
  Receipt Date: 20041208
  Transmission Date: 20050328
  Serious: Yes (Disabling)
  Sender: FDA-Public Use
  Company Number: DE-MERCK-0412DEU00083

PATIENT
  Sex: Male

DRUGS (1)
  1. VIOXX [Suspect]
     Indication: INFLAMMATION
     Route: 048
     Dates: start: 20030101, end: 20040701

REACTIONS (4)
  - ANGINA PECTORIS [None]
  - CARDIAC FAILURE [None]
  - FLUID RETENTION [None]
  - PALPITATIONS [None]
